FAERS Safety Report 21752985 (Version 1)
Quarter: 2022Q4

REPORT INFORMATION
  Report Type: Spontaneous
  Country: US (occurrence: US)
  Receive Date: 20221220
  Receipt Date: 20221220
  Transmission Date: 20230113
  Serious: No
  Sender: FDA-Public Use
  Company Number: US-TEVA-2022-US-2835382

PATIENT
  Age: 47 Year
  Sex: Female

DRUGS (1)
  1. AJOVY [Suspect]
     Active Substance: FREMANEZUMAB-VFRM
     Indication: Product used for unknown indication
     Dosage: STRENGTH: 225 MG / 1.5 ML, INJECTION (AUTOINJECTOR)
     Route: 065

REACTIONS (9)
  - Migraine [Not Recovered/Not Resolved]
  - Injection site hypersensitivity [Not Recovered/Not Resolved]
  - Injection site erythema [Unknown]
  - Injection site mass [Unknown]
  - Injection site irritation [Unknown]
  - Device allergy [Unknown]
  - Wrong technique in device usage process [Unknown]
  - Device defective [Unknown]
  - Device leakage [Unknown]
